FAERS Safety Report 8100167-8 (Version None)
Quarter: 2012Q1

REPORT INFORMATION
  Report Type: 
  Country: None (occurrence: None)
  Receive Date: 20120129
  Receipt Date: 20111129
  Transmission Date: 20120608
  Serious: No
  Sender: FDA-Public Use
  Company Number: US-ABBOTT-11P-163-0879384-00

PATIENT
  Age: 64 Year
  Sex: Female

DRUGS (5)
  1. MULTI-VITAMINS [Concomitant]
     Indication: PRODUCT USED FOR UNKNOWN INDICATION
  2. SUPPLEMENTS [Concomitant]
     Indication: PRODUCT USED FOR UNKNOWN INDICATION
  3. FLEXERIL [Concomitant]
     Indication: BACK DISORDER
     Dosage: AT BEDTIME
  4. HUMIRA [Suspect]
     Indication: CROHN'S DISEASE
     Dosage: DAY 1
     Dates: start: 20111117
  5. PEPCID [Concomitant]
     Indication: ABDOMINAL DISCOMFORT
     Dosage: AT BEDTIME

REACTIONS (1)
  - DECREASED APPETITE [None]
